FAERS Safety Report 6877851-7 (Version None)
Quarter: 2010Q3

REPORT INFORMATION
  Report Type: 
  Country: None (occurrence: None)
  Receive Date: 20100727
  Receipt Date: 20100714
  Transmission Date: 20110219
  Serious: Yes (Other)
  Sender: FDA-Public Use
  Company Number: PHHY2010US46848

PATIENT
  Sex: Male

DRUGS (1)
  1. GLEEVEC [Suspect]
     Dosage: 300 MG DAILY

REACTIONS (3)
  - CORONARY ARTERY DISEASE [None]
  - GASTROINTESTINAL STROMAL TUMOUR [None]
  - OEDEMA PERIPHERAL [None]
